FAERS Safety Report 7426901-8 (Version None)
Quarter: 2011Q2

REPORT INFORMATION
  Report Type: 
  Country: None (occurrence: None)
  Receive Date: 20110420
  Receipt Date: 20110415
  Transmission Date: 20111010
  Serious: Yes (Death, Other)
  Sender: FDA-Public Use
  Company Number: GB-NAPPMUNDI-GBR-2011-0007780

PATIENT
  Age: 82 Year
  Sex: Male

DRUGS (2)
  1. BUTRANS TRANSDERMAL PATCH [Suspect]
     Indication: ARTHRALGIA
     Route: 062
  2. CODEINE [Concomitant]
     Indication: ARTHRALGIA

REACTIONS (2)
  - COMPLETED SUICIDE [None]
  - INADEQUATE ANALGESIA [None]
